FAERS Safety Report 21692763 (Version 1)
Quarter: 2022Q4

REPORT INFORMATION
  Report Type: Spontaneous
  Country: US (occurrence: None)
  Receive Date: 20221206
  Receipt Date: 20221206
  Transmission Date: 20230113
  Serious: Yes (Hospitalization)
  Sender: FDA-Public Use
  Company Number: None

PATIENT
  Sex: Female

DRUGS (1)
  1. KESIMPTA [Suspect]
     Active Substance: OFATUMUMAB
     Indication: Multiple sclerosis
     Dosage: FREQUENCY : MONTHLY;?
     Route: 058
     Dates: start: 20221003

REACTIONS (9)
  - Fatigue [None]
  - Mobility decreased [None]
  - Gait disturbance [None]
  - Balance disorder [None]
  - Visual impairment [None]
  - Abdominal discomfort [None]
  - Pneumonia [None]
  - Rhinovirus infection [None]
  - Sepsis [None]
